FAERS Safety Report 6299172-6 (Version None)
Quarter: 2009Q3

REPORT INFORMATION
  Report Type: 
  Country: None (occurrence: None)
  Receive Date: 20090806
  Receipt Date: 20090730
  Transmission Date: 20100115
  Serious: Yes (Other)
  Sender: FDA-Public Use
  Company Number: TW-ASTRAZENECA-2009SE06437

PATIENT
  Age: 57 Year
  Sex: Female

DRUGS (3)
  1. SEROQUEL [Suspect]
     Indication: MENTAL DISORDER
     Route: 048
  2. SEROQUEL [Suspect]
     Route: 048
  3. DEPARKINE [Concomitant]
     Indication: MENTAL DISORDER

REACTIONS (1)
  - LEUKOPENIA [None]
